FAERS Safety Report 7280524-2 (Version None)
Quarter: 2011Q1

REPORT INFORMATION
  Report Type: 
  Country: None (occurrence: None)
  Receive Date: 20110208
  Receipt Date: 20110205
  Transmission Date: 20110831
  Serious: Yes (Other)
  Sender: FDA-Public Use
  Company Number: US-PFIZER INC-2011026350

PATIENT
  Sex: Female

DRUGS (2)
  1. ADVIL [Suspect]
     Indication: UPPER RESPIRATORY TRACT CONGESTION
     Dosage: UNK
     Route: 048
     Dates: start: 20110205
  2. CYMBALTA [Suspect]
     Dosage: UNK
     Route: 048
     Dates: start: 20110205

REACTIONS (1)
  - CHEST DISCOMFORT [None]
